FAERS Safety Report 13929196 (Version 1)
Quarter: 2017Q3

REPORT INFORMATION
  Report Type: Spontaneous
  Country: US (occurrence: US)
  Receive Date: 20170901
  Receipt Date: 20170901
  Transmission Date: 20171127
  Serious: Yes (Death, Other)
  Sender: FDA-Public Use
  Company Number: US-FRESENIUS KABI-FK201707348

PATIENT
  Age: 58 Year
  Sex: Female

DRUGS (10)
  1. GEMCITABINE [Concomitant]
     Active Substance: GEMCITABINE\GEMCITABINE HYDROCHLORIDE
     Indication: PAPILLARY SEROUS ENDOMETRIAL CARCINOMA
  2. BEVACIZUMAB. [Concomitant]
     Active Substance: BEVACIZUMAB
     Indication: PAPILLARY SEROUS ENDOMETRIAL CARCINOMA
  3. CARBOPLATIN (MANUFACTURER UNKNOWN) [Suspect]
     Active Substance: CARBOPLATIN
     Indication: PAPILLARY SEROUS ENDOMETRIAL CARCINOMA
     Route: 065
  4. PACLITAXEL. [Concomitant]
     Active Substance: PACLITAXEL
  5. DOXORUBICIN [Concomitant]
     Active Substance: DOXORUBICIN
     Indication: PAPILLARY SEROUS ENDOMETRIAL CARCINOMA
  6. BEVACIZUMAB. [Concomitant]
     Active Substance: BEVACIZUMAB
     Indication: PAPILLARY SEROUS ENDOMETRIAL CARCINOMA
  7. PACLITAXEL. [Concomitant]
     Active Substance: PACLITAXEL
     Indication: PAPILLARY SEROUS ENDOMETRIAL CARCINOMA
  8. BEVACIZUMAB. [Concomitant]
     Active Substance: BEVACIZUMAB
  9. CYCLOPHOSPHAMIDE. [Concomitant]
     Active Substance: CYCLOPHOSPHAMIDE
     Indication: PAPILLARY SEROUS ENDOMETRIAL CARCINOMA
     Route: 048
  10. OLAPARIB. [Suspect]
     Active Substance: OLAPARIB
     Indication: PAPILLARY SEROUS ENDOMETRIAL CARCINOMA
     Route: 048

REACTIONS (1)
  - BRCA1 gene mutation [Unknown]
